FAERS Safety Report 17521944 (Version 2)
Quarter: 2020Q2

REPORT INFORMATION
  Report Type: Spontaneous
  Country: US (occurrence: US)
  Receive Date: 20200310
  Receipt Date: 20200407
  Transmission Date: 20200713
  Serious: Yes (Other)
  Sender: FDA-Public Use
  Company Number: US-FARMAPROD-201911-1788

PATIENT
  Age: 63 Year
  Sex: Female

DRUGS (19)
  1. OXERVATE [Suspect]
     Active Substance: CENEGERMIN-BKBJ
     Indication: HERPES ZOSTER
  2. POLYTRIM [Concomitant]
     Active Substance: POLYMYXIN B SULFATE\TRIMETHOPRIM SULFATE
     Route: 047
  3. PRED MILD [Concomitant]
     Active Substance: PREDNISOLONE ACETATE
     Route: 047
  4. ONDASETRON [Concomitant]
     Active Substance: ONDANSETRON
  5. BACLOFEN. [Concomitant]
     Active Substance: BACLOFEN
  6. OMEPRAZOLE. [Concomitant]
     Active Substance: OMEPRAZOLE
  7. CYCLOBENZAPRIN [Concomitant]
     Active Substance: CYCLOBENZAPRINE
  8. CELEBREX [Concomitant]
     Active Substance: CELECOXIB
  9. OXERVATE [Suspect]
     Active Substance: CENEGERMIN-BKBJ
     Indication: NEUROTROPHIC KERATOPATHY
     Route: 047
     Dates: start: 20191107, end: 20200102
  10. OXERVATE [Suspect]
     Active Substance: CENEGERMIN-BKBJ
     Indication: ULCERATIVE KERATITIS
     Route: 047
     Dates: start: 20200120
  11. OXERVATE [Suspect]
     Active Substance: CENEGERMIN-BKBJ
     Indication: HYPOAESTHESIA EYE
  12. DEXAMPHETAMINE [Concomitant]
     Active Substance: AMPHETAMINE
  13. CARAFATE [Concomitant]
     Active Substance: SUCRALFATE
  14. ZOLPIDEM [Concomitant]
     Active Substance: ZOLPIDEM TARTRATE
  15. VALTREX [Concomitant]
     Active Substance: VALACYCLOVIR HYDROCHLORIDE
     Route: 048
  16. METOCLOPRAMIDE. [Concomitant]
     Active Substance: METOCLOPRAMIDE
  17. HYOSCYAMINE. [Concomitant]
     Active Substance: HYOSCYAMINE
  18. ARMOUR THYROID [Concomitant]
     Active Substance: THYROID, PORCINE
  19. BUPRENORPHINE NALOXONE [Concomitant]
     Active Substance: BUPRENORPHINE\NALOXONE
     Dosage: 8/2 MG

REACTIONS (10)
  - Influenza [Recovered/Resolved]
  - Diarrhoea [Recovered/Resolved]
  - Paranasal sinus discomfort [Unknown]
  - Therapy partial responder [Unknown]
  - Eye pain [Unknown]
  - Eye irritation [Not Recovered/Not Resolved]
  - Corneal neovascularisation [Unknown]
  - Corneal opacity [Not Recovered/Not Resolved]
  - Vision blurred [Not Recovered/Not Resolved]
  - Capillary fragility [Unknown]

NARRATIVE: CASE EVENT DATE: 201911
